FAERS Safety Report 24238767 (Version 1)
Quarter: 2024Q3

REPORT INFORMATION
  Report Type: Spontaneous
  Country: US (occurrence: US)
  Receive Date: 20240822
  Receipt Date: 20240822
  Transmission Date: 20241016
  Serious: Yes (Life-Threatening, Other)
  Sender: AMGEN
  Company Number: US-AMGEN-USASP2024164548

PATIENT
  Age: 60 Year
  Sex: Male

DRUGS (6)
  1. PREDNISONE [Suspect]
     Active Substance: PREDNISONE
     Indication: Product used for unknown indication
     Dosage: UNK
     Route: 065
  2. PREDNISONE [Suspect]
     Active Substance: PREDNISONE
     Dosage: 5 MILLIGRAM, QD (DOSE WAS TAPERED OVER MANY WEEKS)
     Route: 065
  3. ROMIPLOSTIM [Suspect]
     Active Substance: ROMIPLOSTIM
     Indication: Thrombocytopenia
     Dosage: 10 MICROGRAM/KILOGRAM, QWK
     Route: 065
  4. RITUXIMAB [Suspect]
     Active Substance: RITUXIMAB
     Indication: Thrombocytopenia
     Dosage: UNK
     Route: 065
  5. ELTROMBOPAG [Concomitant]
     Active Substance: ELTROMBOPAG
     Indication: Thrombocytopenia
     Dosage: UNK UNK, QD (100 MG TO 150 MG FOR OVER 24 WEEKS)
  6. DANAZOL [Concomitant]
     Active Substance: DANAZOL
     Indication: Thrombocytopenia
     Dosage: UNK, LOW DOSE

REACTIONS (2)
  - Haemorrhage [Unknown]
  - Hypogammaglobulinaemia [Unknown]
